FAERS Safety Report 24087916 (Version 2)
Quarter: 2024Q3

REPORT INFORMATION
  Report Type: Spontaneous
  Country: JP (occurrence: JP)
  Receive Date: 20240715
  Receipt Date: 20240805
  Transmission Date: 20241016
  Serious: Yes (Death)
  Sender: JOHNSON AND JOHNSON
  Company Number: JP-BAYER-2024A100476

PATIENT
  Age: 87 Year
  Sex: Male

DRUGS (3)
  1. RIVAROXABAN [Suspect]
     Active Substance: RIVAROXABAN
     Indication: Peripheral revascularisation
     Dosage: UNK
     Route: 048
     Dates: start: 20230905, end: 20231226
  2. RIVAROXABAN [Suspect]
     Active Substance: RIVAROXABAN
     Indication: Peripheral arterial occlusive disease
     Route: 048
  3. RIVAROXABAN [Suspect]
     Active Substance: RIVAROXABAN
     Indication: Thrombosis prophylaxis
     Route: 048

REACTIONS (1)
  - Peripheral arterial occlusive disease [Fatal]

NARRATIVE: CASE EVENT DATE: 20231230
